FAERS Safety Report 15964733 (Version 3)
Quarter: 2019Q1

REPORT INFORMATION
  Report Type: Spontaneous
  Country: JP (occurrence: JP)
  Receive Date: 20190215
  Receipt Date: 20190315
  Transmission Date: 20190418
  Serious: Yes (Other)
  Sender: FDA-Public Use
  Company Number: JP-GLAXOSMITHKLINE-JP2019JPN017234

PATIENT
  Age: 31 Year
  Sex: Female
  Weight: 70 kg

DRUGS (3)
  1. KETOPROFEN TAPE [Concomitant]
     Indication: BACK PAIN
     Dosage: 1 (THE UNITS WERE UNKNOWN), QD
     Route: 061
     Dates: start: 20181121, end: 20190306
  2. VALTREX [Suspect]
     Active Substance: VALACYCLOVIR HYDROCHLORIDE
     Indication: PROPHYLAXIS
  3. VALTREX [Suspect]
     Active Substance: VALACYCLOVIR HYDROCHLORIDE
     Indication: MENINGITIS HERPES
     Dosage: 500 MG, QD
     Route: 048
     Dates: start: 20170215

REACTIONS (4)
  - Product use in unapproved indication [Unknown]
  - Symptom recurrence [Unknown]
  - Off label use [Unknown]
  - Meningitis herpes [Unknown]

NARRATIVE: CASE EVENT DATE: 20170215
